FAERS Safety Report 9443448 (Version 1)
Quarter: 2013Q3

REPORT INFORMATION
  Report Type: Spontaneous
  Country: US (occurrence: None)
  Receive Date: 20130802
  Receipt Date: 20130802
  Transmission Date: 20140515
  Serious: Yes (Hospitalization, Other)
  Sender: FDA-Public Use
  Company Number: DEP_01003_2013

PATIENT
  Age: 59 Year
  Sex: Female
  Weight: 84 kg

DRUGS (9)
  1. GABAPENTIN 300 MG [Suspect]
     Indication: BACK PAIN
     Dosage: (DF) ?
  2. GABAPENTIN 300 MG [Suspect]
     Indication: OFF LABEL USE
     Dosage: (DF) ?
  3. HYDROCODONE/ACETAMINOPHEN [Suspect]
     Indication: BACK PAIN
     Dosage: (AS NEEDED)
  4. VENLAFAXINE [Concomitant]
  5. TELMISARTAN [Concomitant]
  6. GLIPIZIDE [Concomitant]
  7. METFORMIN [Concomitant]
  8. SIMVASTATIN [Concomitant]
  9. GEMFIBROZIL [Concomitant]

REACTIONS (6)
  - Overdose [None]
  - Intentional self-injury [None]
  - Suicide attempt [None]
  - Sedation [None]
  - Nausea [None]
  - Drug level increased [None]
